FAERS Safety Report 16878252 (Version 2)
Quarter: 2019Q4

REPORT INFORMATION
  Report Type: Spontaneous
  Country: JP (occurrence: JP)
  Receive Date: 20191002
  Receipt Date: 20191029
  Transmission Date: 20200122
  Serious: Yes (Hospitalization)
  Sender: FDA-Public Use
  Company Number: PHJP2019JP012932

PATIENT
  Age: 94 Year
  Sex: Female

DRUGS (1)
  1. EXELON PATCH [Suspect]
     Active Substance: RIVASTIGMINE
     Indication: PRODUCT USED FOR UNKNOWN INDICATION
     Dosage: 1.9 MG QD (PATCH 2.5 (CM2), 4.5 MG RIVASTIGMINE BASE)
     Route: 062

REACTIONS (2)
  - Fracture [Unknown]
  - Fall [Unknown]
